FAERS Safety Report 5884221-7 (Version None)
Quarter: 2008Q3

REPORT INFORMATION
  Report Type: 
  Country: None (occurrence: None)
  Receive Date: 20080915
  Receipt Date: 20080909
  Transmission Date: 20090109
  Serious: Yes (Death, Life-Threatening)
  Sender: FDA-Public Use
  Company Number: US-ROXANE LABORATORIES, INC.-2008-RO-00002RO

PATIENT
  Sex: Female
  Weight: 55 kg

DRUGS (15)
  1. METHADONE HCL [Suspect]
  2. OPANA ER [Suspect]
     Indication: PAIN IN EXTREMITY
     Dosage: 20MG
     Route: 048
     Dates: start: 20080201
  3. XANAX [Suspect]
     Indication: DEPRESSION
     Dosage: 1MG
     Route: 048
  4. XANAX [Suspect]
     Indication: ANXIETY
  5. LORCET-HD [Concomitant]
     Indication: BREAKTHROUGH PAIN
  6. LANTUS [Concomitant]
     Indication: TYPE 1 DIABETES MELLITUS
     Route: 058
  7. NOVOLOG [Concomitant]
     Indication: TYPE 1 DIABETES MELLITUS
     Route: 058
  8. ZONEGRAN [Concomitant]
     Dosage: 200MG
     Route: 048
  9. TRILEPTAL [Concomitant]
     Indication: NEURALGIA
     Dosage: 600MG
     Route: 048
  10. CYMBALTA [Concomitant]
     Indication: DEPRESSION
     Dosage: 90MG
     Route: 048
  11. PLAVIX [Concomitant]
     Indication: THROMBOSIS PROPHYLAXIS
     Dosage: 75MG
     Route: 048
  12. REGLAN [Concomitant]
     Indication: IMPAIRED GASTRIC EMPTYING
     Dosage: 40MG
  13. HYZAAR [Concomitant]
     Indication: HYPERTENSION
     Route: 048
  14. LYRICA [Concomitant]
     Indication: FIBROMYALGIA
     Dosage: 150MG
     Route: 048
  15. PREVACID [Concomitant]
     Indication: GASTROOESOPHAGEAL REFLUX DISEASE
     Dosage: 60MG
     Route: 048

REACTIONS (7)
  - DIABETES MELLITUS INADEQUATE CONTROL [None]
  - DRUG INTERACTION [None]
  - DRUG TOXICITY [None]
  - INSOMNIA [None]
  - MALAISE [None]
  - PAIN IN EXTREMITY [None]
  - VOMITING [None]
